FAERS Safety Report 19953232 (Version 1)
Quarter: 2021Q4

REPORT INFORMATION
  Report Type: Spontaneous
  Country: CA (occurrence: CA)
  Receive Date: 20211013
  Receipt Date: 20211013
  Transmission Date: 20220304
  Serious: No
  Sender: FDA-Public Use
  Company Number: None

PATIENT
  Age: 5 Year
  Sex: Female
  Weight: 22.5 kg

DRUGS (1)
  1. POLYETHYLENE GLYCOL 3350 [Suspect]
     Active Substance: POLYETHYLENE GLYCOL 3350
     Indication: Constipation
     Dates: start: 20171002, end: 20211005

REACTIONS (10)
  - Behaviour disorder [None]
  - Mood swings [None]
  - Aggression [None]
  - Emotional disorder [None]
  - Emotional distress [None]
  - Aggression [None]
  - Crying [None]
  - Agitation [None]
  - Anger [None]
  - Aggression [None]

NARRATIVE: CASE EVENT DATE: 20181001
